FAERS Safety Report 14083379 (Version 1)
Quarter: 2017Q4

REPORT INFORMATION
  Report Type: Spontaneous
  Country: FR (occurrence: FR)
  Receive Date: 20171012
  Receipt Date: 20171012
  Transmission Date: 20180321
  Serious: Yes (Hospitalization)
  Sender: FDA-Public Use
  Company Number: FR-ROCHE-2006090

PATIENT
  Age: 38 Year
  Sex: Male

DRUGS (4)
  1. CANNABIS [Concomitant]
     Active Substance: CANNABIS SATIVA SUBSP. INDICA TOP
     Route: 065
  2. COCAINE [Concomitant]
     Active Substance: COCAINE
     Dosage: SINCE 2 YEARS AGO
     Route: 045
  3. RIVOTRIL [Suspect]
     Active Substance: CLONAZEPAM
     Indication: PRODUCT USED FOR UNKNOWN INDICATION
     Dosage: FOUR-SCORED TABLET, SUBSEQUENTLY RECEIVED ON 21/FEB/2017
     Route: 048
     Dates: start: 2015, end: 2017
  4. HEROIN [Concomitant]
     Active Substance: DIAMORPHINE
     Dosage: SINCE 2 YEARS AGO, ALSO CONSUMED ON 25/FEB/2017
     Route: 045

REACTIONS (1)
  - Drug use disorder [Not Recovered/Not Resolved]

NARRATIVE: CASE EVENT DATE: 2015
